FAERS Safety Report 8384572-0 (Version None)
Quarter: 2012Q2

REPORT INFORMATION
  Report Type: 
  Country: None (occurrence: None)
  Receive Date: 20120524
  Receipt Date: 20120514
  Transmission Date: 20120825
  Serious: Yes (Hospitalization, Other)
  Sender: FDA-Public Use
  Company Number: US-ABBOTT-12P-163-0937676-00

PATIENT
  Sex: Male

DRUGS (2)
  1. NEORAL [Suspect]
     Indication: RENAL TRANSPLANT
     Route: 048
     Dates: start: 19860101
  2. GENGRAF [Suspect]
     Indication: PROPHYLAXIS AGAINST TRANSPLANT REJECTION

REACTIONS (3)
  - TRANSPLANT [None]
  - DIALYSIS [None]
  - KIDNEY TRANSPLANT REJECTION [None]
